FAERS Safety Report 9711692 (Version 1)
Quarter: 2013Q4

REPORT INFORMATION
  Report Type: Spontaneous
  Country: ZA (occurrence: ZA)
  Receive Date: 20131126
  Receipt Date: 20131126
  Transmission Date: 20140711
  Serious: Yes (Other)
  Sender: FDA-Public Use
  Company Number: ZA-BAYER-2013-143411

PATIENT
  Age: 65 Year
  Sex: Male

DRUGS (1)
  1. LEVITRA 5 [Suspect]
     Indication: ERECTILE DYSFUNCTION
     Dosage: 5 G, UNK
     Route: 048

REACTIONS (3)
  - Atrial fibrillation [None]
  - Tachycardia [None]
  - Dizziness [None]
